FAERS Safety Report 7088014-7 (Version None)
Quarter: 2010Q4

REPORT INFORMATION
  Report Type: 
  Country: None (occurrence: None)
  Receive Date: 20101108
  Receipt Date: 20101029
  Transmission Date: 20110411
  Serious: Yes (Hospitalization, Other)
  Sender: FDA-Public Use
  Company Number: US-US-EMD SERONO, INC.-7009813

PATIENT
  Sex: Male

DRUGS (5)
  1. REBIF [Suspect]
     Indication: PRODUCT USED FOR UNKNOWN INDICATION
     Route: 058
     Dates: start: 20051013, end: 20090101
  2. REBIF [Suspect]
     Route: 058
     Dates: start: 20091201
  3. REBIF [Suspect]
     Route: 058
     Dates: start: 20100501, end: 20100101
  4. REBIF [Suspect]
     Route: 058
     Dates: start: 20100101, end: 20100101
  5. REBIF [Suspect]
     Route: 058
     Dates: start: 20100101

REACTIONS (7)
  - DRUG INTERACTION [None]
  - HIATUS HERNIA [None]
  - INCREASED UPPER AIRWAY SECRETION [None]
  - INFECTION [None]
  - INJECTION SITE REACTION [None]
  - MOOD ALTERED [None]
  - PNEUMONIA ASPIRATION [None]
